FAERS Safety Report 4863649-8 (Version None)
Quarter: 2005Q4

REPORT INFORMATION
  Report Type: 
  Country: None (occurrence: None)
  Receive Date: 20051222
  Receipt Date: 20050919
  Transmission Date: 20060501
  Serious: No
  Sender: FDA-Public Use
  Company Number: US-GLAXOSMITHKLINE-A0574856A

PATIENT
  Age: 9 Year
  Sex: Male

DRUGS (3)
  1. FLOVENT [Suspect]
     Indication: ASTHMA
     Dosage: 2PUFF TWICE PER DAY
     Route: 055
     Dates: start: 20030101
  2. ALBUTEROL [Concomitant]
  3. CONCERTA [Concomitant]
     Route: 065

REACTIONS (2)
  - TOOTH DISCOLOURATION [None]
  - TOOTH EROSION [None]
